FAERS Safety Report 26125626 (Version 1)
Quarter: 2025Q4

REPORT INFORMATION
  Report Type: Spontaneous
  Country: US (occurrence: US)
  Receive Date: 20251205
  Receipt Date: 20251205
  Transmission Date: 20260118
  Serious: No
  Sender: GLAND PHARMA LTD
  Company Number: US-GLANDPHARMA-US-2025GLNSPO02095

PATIENT

DRUGS (4)
  1. LEVOFLOXACIN [Suspect]
     Active Substance: LEVOFLOXACIN
     Indication: Chronic gastritis
     Route: 065
     Dates: start: 202507
  2. LEVOFLOXACIN [Suspect]
     Active Substance: LEVOFLOXACIN
     Indication: Chronic gastritis
  3. AMOXICILLIN [Suspect]
     Active Substance: AMOXICILLIN
     Indication: Chronic gastritis
     Route: 065
     Dates: start: 202507
  4. AMOXICILLIN [Suspect]
     Active Substance: AMOXICILLIN
     Indication: Chronic gastritis

REACTIONS (1)
  - Drug ineffective for unapproved indication [Unknown]

NARRATIVE: CASE EVENT DATE: 20250701
